FAERS Safety Report 7277768-2 (Version None)
Quarter: 2011Q1

REPORT INFORMATION
  Report Type: 
  Country: None (occurrence: None)
  Receive Date: 20110207
  Receipt Date: 20100402
  Transmission Date: 20110831
  Serious: No
  Sender: FDA-Public Use
  Company Number: A0853212A

PATIENT
  Age: 55 Year
  Sex: Female

DRUGS (6)
  1. OMEPRAZOLE [Concomitant]
  2. CALCIUM [Concomitant]
  3. MAXZIDE [Concomitant]
  4. MULTI-VITAMINS [Concomitant]
  5. VITAMIN B-12 [Concomitant]
  6. OLUX E FOAM (EMULSION AEROSOL FOAM) [Suspect]
     Indication: PSORIASIS
     Dosage: 1APP AS REQUIRED
     Route: 061
     Dates: start: 20000101

REACTIONS (2)
  - PRODUCT QUALITY ISSUE [None]
  - HAIR DISORDER [None]
